FAERS Safety Report 9249235 (Version 1)
Quarter: 2013Q2

REPORT INFORMATION
  Report Type: Spontaneous
  Country: US (occurrence: US)
  Receive Date: 20130423
  Receipt Date: 20130423
  Transmission Date: 20140414
  Serious: Yes (Hospitalization)
  Sender: FDA-Public Use
  Company Number: US-BAYER-2013-050777

PATIENT
  Age: 23 Year
  Sex: Female
  Weight: 74 kg

DRUGS (12)
  1. YASMIN [Suspect]
  2. AVELOX [Concomitant]
     Dosage: 400 MG, UNK
  3. SINGULAIR [Concomitant]
     Dosage: 10 MG, UNK
  4. PROTONIX [Concomitant]
  5. SYNTHROID [Concomitant]
     Dosage: 0.088 MCG, UNK
  6. CLARITIN [Concomitant]
  7. DEXAMETHASONE [Concomitant]
     Dosage: 4.0 MG, UNK
  8. ACETAMINOPHEN W/CODEINE [Concomitant]
  9. TUMS [CALCIUM CARBONATE,MAGNESIUM CARBONATE,MAGNESIUM TRISILICATE] [Concomitant]
  10. LEVOTHYROXINE [Concomitant]
  11. PANTOPRAZOLE [Concomitant]
  12. ACETAMINOPHEN W/OXYCODONE [Concomitant]

REACTIONS (1)
  - Pelvic venous thrombosis [None]
